FAERS Safety Report 7563840-6 (Version None)
Quarter: 2011Q2

REPORT INFORMATION
  Report Type: 
  Country: None (occurrence: None)
  Receive Date: 20110621
  Receipt Date: 20110621
  Transmission Date: 20111010
  Serious: Yes (Disabling)
  Sender: FDA-Public Use
  Company Number: None

PATIENT
  Sex: Female
  Weight: 47.6277 kg

DRUGS (2)
  1. FOSAMAX [Suspect]
     Indication: BONE DENSITY DECREASED
     Dosage: 70 MG. WEEKLY
  2. FOSAMAX PLUS D [Suspect]
     Indication: OSTEOPOROSIS
     Dosage: 70 MG. WEEKLY

REACTIONS (9)
  - ORAL CAVITY FISTULA [None]
  - GRAFT COMPLICATION [None]
  - INFECTION [None]
  - OROPHARYNGEAL BLISTERING [None]
  - ENDODONTIC PROCEDURE [None]
  - BONE GRAFT [None]
  - PERIODONTAL DISEASE [None]
  - TOOTH DISORDER [None]
  - TOOTH EXTRACTION [None]
